FAERS Safety Report 6685879-5 (Version None)
Quarter: 2010Q2

REPORT INFORMATION
  Report Type: 
  Country: None (occurrence: None)
  Receive Date: 20100414
  Receipt Date: 20100330
  Transmission Date: 20101027
  Serious: Yes (Other)
  Sender: FDA-Public Use
  Company Number: OPER20100056

PATIENT
  Age: 30 Year
  Sex: Male

DRUGS (1)
  1. OPANA ER [Suspect]
     Indication: INTENTIONAL DRUG MISUSE
     Dosage: 15 MG, INTRA-NASAL
     Route: 045

REACTIONS (4)
  - ASPIRATION [None]
  - INCORRECT ROUTE OF DRUG ADMINISTRATION [None]
  - THERAPY NAIVE [None]
  - WRONG TECHNIQUE IN DRUG USAGE PROCESS [None]
